FAERS Safety Report 25527751 (Version 1)
Quarter: 2025Q3

REPORT INFORMATION
  Report Type: Spontaneous
  Country: US (occurrence: US)
  Receive Date: 20250708
  Receipt Date: 20250708
  Transmission Date: 20251021
  Serious: No
  Sender: AMGEN
  Company Number: US-AMGEN-USASP2025130685

PATIENT
  Age: 34 Year
  Sex: Female

DRUGS (1)
  1. REPATHA [Suspect]
     Active Substance: EVOLOCUMAB
     Indication: Blood cholesterol increased
     Route: 065
     Dates: start: 202502

REACTIONS (15)
  - Hypertension [Unknown]
  - Headache [Unknown]
  - Paraesthesia [Unknown]
  - Confusional state [Unknown]
  - Muscle spasms [Unknown]
  - Arthritis [Unknown]
  - Blood glucose increased [Unknown]
  - Rhinorrhoea [Unknown]
  - Blood thyroid stimulating hormone decreased [Unknown]
  - Red blood cell count increased [Unknown]
  - Illness [Not Recovered/Not Resolved]
  - Infection [Unknown]
  - Chest pain [Unknown]
  - Contusion [Unknown]
  - Blood glucose abnormal [Unknown]

NARRATIVE: CASE EVENT DATE: 20250101
